FAERS Safety Report 24620206 (Version 1)
Quarter: 2024Q4

REPORT INFORMATION
  Report Type: Spontaneous
  Country: US (occurrence: US)
  Receive Date: 20241114
  Receipt Date: 20241114
  Transmission Date: 20250115
  Serious: No
  Sender: CURRAX PHARMACEUTICALS
  Company Number: US-CURRAX PHARMACEUTICALS LLC-US-2024CUR003524

PATIENT

DRUGS (1)
  1. CONTRAVE [Suspect]
     Active Substance: BUPROPION HYDROCHLORIDE\NALTREXONE HYDROCHLORIDE
     Indication: Weight control
     Dosage: STRENGTH 8/90 MG, TOOK ONE TABLET
     Route: 065

REACTIONS (4)
  - Head discomfort [Recovering/Resolving]
  - Feeling drunk [Recovering/Resolving]
  - Dizziness [Recovering/Resolving]
  - Feeling abnormal [Not Recovered/Not Resolved]
